FAERS Safety Report 7581144-2 (Version None)
Quarter: 2011Q2

REPORT INFORMATION
  Report Type: 
  Country: None (occurrence: None)
  Receive Date: 20110629
  Receipt Date: 20110620
  Transmission Date: 20111010
  Serious: Yes (Other)
  Sender: FDA-Public Use
  Company Number: US-PFIZER INC-2011137184

PATIENT
  Sex: Female

DRUGS (6)
  1. IRINOTECAN HCL [Suspect]
     Indication: ASTROCYTOMA
     Dosage: UNK
     Dates: start: 20100927
  2. ONDANSETRON HYDROCHLORIDE [Concomitant]
     Dosage: UNK
     Dates: start: 20100928
  3. CETUXIMAB [Suspect]
     Indication: ASTROCYTOMA
     Dosage: UNK
     Dates: start: 20100927
  4. CIPROFLOXACIN [Concomitant]
     Dosage: UNK
     Dates: start: 20110523
  5. CORTISPORIN [Concomitant]
     Dosage: UNK
     Dates: start: 20101101
  6. ATROPINE [Concomitant]
     Dosage: UNK
     Dates: start: 20110523

REACTIONS (1)
  - KERATITIS [None]
